FAERS Safety Report 6750907-5 (Version None)
Quarter: 2010Q2

REPORT INFORMATION
  Report Type: 
  Country: None (occurrence: None)
  Receive Date: 20100602
  Receipt Date: 20100521
  Transmission Date: 20101027
  Serious: Yes (Hospitalization, Other)
  Sender: FDA-Public Use
  Company Number: PHHY2010US33135

PATIENT
  Sex: Male

DRUGS (2)
  1. EXJADE [Suspect]
     Indication: NEOPLASM
     Dosage: 1500 MG, QD
     Route: 048
     Dates: start: 20080401
  2. EXJADE [Suspect]
     Indication: IRON OVERLOAD

REACTIONS (3)
  - ACUTE LEUKAEMIA [None]
  - DIARRHOEA [None]
  - PYREXIA [None]
